FAERS Safety Report 4496965-2 (Version None)
Quarter: 2004Q4

REPORT INFORMATION
  Report Type: 
  Country: None (occurrence: None)
  Receive Date: 20041109
  Receipt Date: 20041104
  Transmission Date: 20050328
  Serious: Yes (Disabling)
  Sender: FDA-Public Use
  Company Number: US-MERCK-0411USA00770

PATIENT
  Age: 76 Year
  Sex: Female

DRUGS (5)
  1. VIOXX [Suspect]
     Indication: GOUT
     Route: 048
     Dates: start: 20040401, end: 20040101
  2. VIOXX [Suspect]
     Route: 048
     Dates: start: 20040101, end: 20040701
  3. ATENOLOL [Concomitant]
     Route: 065
  4. PRINIVIL [Concomitant]
     Route: 048
  5. LASIX [Concomitant]
     Route: 065

REACTIONS (2)
  - EYE HAEMORRHAGE [None]
  - FACIAL PALSY [None]
